FAERS Safety Report 13417795 (Version 2)
Quarter: 2017Q2

REPORT INFORMATION
  Report Type: Spontaneous
  Country: US (occurrence: US)
  Receive Date: 20170407
  Receipt Date: 20170502
  Transmission Date: 20170830
  Serious: No
  Sender: FDA-Public Use
  Company Number: US-PFIZER INC-2017149483

PATIENT
  Age: 73 Year
  Sex: Female

DRUGS (7)
  1. PANTOPRAZOLE [Concomitant]
     Active Substance: PANTOPRAZOLE
     Indication: OESOPHAGEAL SPASM
     Dosage: 40 MG, DAILY
     Dates: start: 201501
  2. NEURONTIN [Suspect]
     Active Substance: GABAPENTIN
     Indication: DIABETIC NEUROPATHY
     Dosage: UNK
     Route: 048
     Dates: start: 20150115
  3. METFORMIN [Concomitant]
     Active Substance: METFORMIN HYDROCHLORIDE
     Indication: TYPE 2 DIABETES MELLITUS
     Dosage: 1000 MG, UNK
     Dates: start: 201501
  4. VILAZODONE [Concomitant]
     Active Substance: VILAZODONE
     Indication: MAJOR DEPRESSION
     Dosage: 20 MG, DAILY
     Dates: start: 201501
  5. BUMETANIDE. [Concomitant]
     Active Substance: BUMETANIDE
     Indication: LEFT VENTRICULAR FAILURE
     Dosage: 2 MG, AS NEEDED (2 MG DAILY ONLY IF NEEDED)
     Dates: start: 201501
  6. METOPROLOL. [Concomitant]
     Active Substance: METOPROLOL
     Indication: FAMILIAL TREMOR
     Dosage: 25 MG, 2X/DAY
     Dates: start: 201501
  7. SPIRONOLACTONE. [Concomitant]
     Active Substance: SPIRONOLACTONE
     Indication: LEFT VENTRICULAR FAILURE
     Dosage: 25 MG, AS NEEDED (25 MG BID IF NEEDED)
     Dates: start: 201501

REACTIONS (4)
  - Product use in unapproved indication [Unknown]
  - Vision blurred [Recovered/Resolved]
  - Drug intolerance [Unknown]
  - Drug hypersensitivity [Unknown]
